FAERS Safety Report 20129205 (Version 1)
Quarter: 2021Q4

REPORT INFORMATION
  Report Type: Spontaneous
  Country: US (occurrence: US)
  Receive Date: 20211130
  Receipt Date: 20211130
  Transmission Date: 20220303
  Serious: No
  Sender: FDA-Public Use
  Company Number: US-BIOGEN-2021BI01070488

PATIENT
  Sex: Female

DRUGS (2)
  1. VUMERITY [Suspect]
     Active Substance: DIROXIMEL FUMARATE
     Indication: Multiple sclerosis
     Route: 065
     Dates: start: 20210813
  2. VUMERITY [Suspect]
     Active Substance: DIROXIMEL FUMARATE
     Dosage: SHE IS TO TAKE 462MG(231 MG X2) PO BID BUT PATIENT STATED SHE HAS BEEN TAKING 1 PILL.
     Route: 048

REACTIONS (6)
  - Underdose [Unknown]
  - Crying [Unknown]
  - Musculoskeletal disorder [Unknown]
  - Pain [Unknown]
  - Muscular weakness [Unknown]
  - Calcinosis [Unknown]
